FAERS Safety Report 8332747-9 (Version None)
Quarter: 2012Q2

REPORT INFORMATION
  Report Type: 
  Country: None (occurrence: None)
  Receive Date: 20120503
  Receipt Date: 20120425
  Transmission Date: 20120825
  Serious: Yes (Other)
  Sender: FDA-Public Use
  Company Number: JP-VERTEX PHARMACEUTICALS INC.-AE-2012-005740

PATIENT
  Age: 74 Year
  Sex: Female

DRUGS (8)
  1. TELAVIC (TELAPREVIR) [Suspect]
     Route: 048
     Dates: start: 20120424
  2. LAC-B [Concomitant]
     Route: 048
     Dates: start: 20070509
  3. TELAVIC (TELAPREVIR) [Suspect]
     Indication: HEPATITIS C
     Route: 048
     Dates: start: 20120403, end: 20120412
  4. REBETOL [Concomitant]
     Route: 048
     Dates: start: 20120403, end: 20120412
  5. FAMOTIDINE D [Concomitant]
     Route: 048
     Dates: start: 20070509
  6. REBETOL [Concomitant]
     Route: 048
     Dates: start: 20120424
  7. PEGINTERFERON ALFA-2B [Concomitant]
     Route: 051
     Dates: start: 20120403, end: 20120410
  8. PEGINTERFERON ALFA-2B [Concomitant]
     Route: 051
     Dates: start: 20120424

REACTIONS (2)
  - NAUSEA [None]
  - DECREASED APPETITE [None]
